FAERS Safety Report 6696953-1 (Version None)
Quarter: 2010Q2

REPORT INFORMATION
  Report Type: 
  Country: None (occurrence: None)
  Receive Date: 20100426
  Receipt Date: 20100416
  Transmission Date: 20101027
  Serious: Yes (Death, Hospitalization, Other)
  Sender: FDA-Public Use
  Company Number: PHEH2010US02883

PATIENT
  Sex: Male

DRUGS (5)
  1. EXJADE [Suspect]
     Dosage: 1750 MG, QD
     Route: 048
  2. ALLOPURINOL [Concomitant]
     Route: 048
  3. AMLODIPINE [Concomitant]
     Route: 048
  4. BACTRIM [Concomitant]
     Route: 048
  5. LACTULOSE [Concomitant]
     Route: 048

REACTIONS (18)
  - ABDOMINAL DISTENSION [None]
  - ARTHRALGIA [None]
  - BLOOD CREATININE INCREASED [None]
  - BURSA DISORDER [None]
  - CLOSTRIDIAL INFECTION [None]
  - DELIRIUM [None]
  - DISEASE PROGRESSION [None]
  - HYPOVENTILATION [None]
  - ILEUS [None]
  - JOINT EFFUSION [None]
  - MYELOBLAST COUNT INCREASED [None]
  - PAIN [None]
  - PAIN IN EXTREMITY [None]
  - PNEUMONIA [None]
  - PYREXIA [None]
  - RENAL FAILURE [None]
  - SEPSIS [None]
  - STAPHYLOCOCCAL INFECTION [None]
